FAERS Safety Report 23757084 (Version 4)
Quarter: 2024Q4

REPORT INFORMATION
  Report Type: Spontaneous
  Country: US (occurrence: US)
  Receive Date: 20240418
  Receipt Date: 20241007
  Transmission Date: 20250115
  Serious: No
  Sender: PFIZER
  Company Number: US-PFIZER INC-PV202400050977

PATIENT
  Age: 66 Year
  Sex: Female

DRUGS (15)
  1. DOCETAXEL [Suspect]
     Active Substance: DOCETAXEL
     Indication: Triple positive breast cancer
     Dosage: 75 MG, SINGLE (EVERY THREE WEEKS, TOTAL 6 CYCLES)
     Dates: start: 20210920, end: 20210920
  2. DOCETAXEL [Suspect]
     Active Substance: DOCETAXEL
     Dosage: 75 MG, SINGLE (EVERY THREE WEEKS, TOTAL 6 CYCLES)
     Dates: start: 20211011, end: 20211011
  3. DOCETAXEL [Suspect]
     Active Substance: DOCETAXEL
     Dosage: 75 MG, SINGLE (EVERY THREE WEEKS, TOTAL 6 CYCLES)
     Dates: start: 20211101, end: 20211101
  4. DOCETAXEL [Suspect]
     Active Substance: DOCETAXEL
     Dosage: 75 MG, SINGLE (EVERY THREE WEEKS, TOTAL 6 CYCLES)
     Dates: start: 20211122, end: 20211122
  5. DOCETAXEL [Suspect]
     Active Substance: DOCETAXEL
     Dosage: 75 MG, SINGLE (EVERY THREE WEEKS, TOTAL 6 CYCLES)
     Dates: start: 20211220, end: 20211220
  6. DOCETAXEL [Suspect]
     Active Substance: DOCETAXEL
     Dosage: 75 MG, SINGLE (EVERY THREE WEEKS, TOTAL 6 CYCLES)
     Dates: start: 20220110, end: 20220110
  7. TAXOTERE [Suspect]
     Active Substance: DOCETAXEL
     Indication: Triple positive breast cancer
     Dosage: 75 MG, SINGLE (EVERY THREE WEEKS, TOTAL 6 CYCLES)
     Dates: start: 20210920, end: 20210920
  8. TAXOTERE [Suspect]
     Active Substance: DOCETAXEL
     Dosage: 75 MG, SINGLE (EVERY THREE WEEKS, TOTAL 6 CYCLES)
     Dates: start: 20211011, end: 20211011
  9. TAXOTERE [Suspect]
     Active Substance: DOCETAXEL
     Dosage: 75 MG, SINGLE (EVERY THREE WEEKS, TOTAL 6 CYCLES)
     Dates: start: 20211101, end: 20211101
  10. TAXOTERE [Suspect]
     Active Substance: DOCETAXEL
     Dosage: 75 MG, SINGLE (EVERY THREE WEEKS, TOTAL 6 CYCLES)
     Dates: start: 20211122, end: 20211122
  11. TAXOTERE [Suspect]
     Active Substance: DOCETAXEL
     Dosage: 75 MG, SINGLE (EVERY THREE WEEKS, TOTAL 6 CYCLES)
     Dates: start: 20211220, end: 20211220
  12. TAXOTERE [Suspect]
     Active Substance: DOCETAXEL
     Dosage: 75 MG, SINGLE (EVERY THREE WEEKS, TOTAL 6 CYCLES)
     Dates: start: 20220110, end: 20220110
  13. TRASTUZUMAB [Concomitant]
     Active Substance: TRASTUZUMAB
     Indication: Chemotherapy
     Dosage: UNK
  14. PERTUZUMAB [Concomitant]
     Active Substance: PERTUZUMAB
     Indication: Chemotherapy
     Dosage: UNK
  15. CARBOPLATIN [Concomitant]
     Active Substance: CARBOPLATIN
     Indication: Chemotherapy
     Dosage: UNK

REACTIONS (2)
  - Lacrimation increased [Not Recovered/Not Resolved]
  - Lacrimal structure injury [Not Recovered/Not Resolved]

NARRATIVE: CASE EVENT DATE: 20210901
